FAERS Safety Report 5940544-4 (Version None)
Quarter: 2008Q4

REPORT INFORMATION
  Report Type: 
  Country: None (occurrence: None)
  Receive Date: 20081104
  Receipt Date: 20081021
  Transmission Date: 20090506
  Serious: Yes (Other)
  Sender: FDA-Public Use
  Company Number: JP-MERCK-0810USA02552

PATIENT
  Age: 70 Year
  Sex: Male

DRUGS (8)
  1. ZETIA [Suspect]
     Indication: HYPERLIPIDAEMIA
     Route: 048
     Dates: start: 20080728, end: 20081005
  2. ASPIRIN [Concomitant]
     Route: 065
     Dates: start: 20040604
  3. GLIMEPIRIDE [Concomitant]
     Route: 065
     Dates: start: 20040604
  4. ISOSORBIDE MONONITRATE [Concomitant]
     Route: 065
     Dates: start: 20040604
  5. AMLODIPINE BESYLATE [Concomitant]
     Route: 065
     Dates: start: 20040604
  6. VOGLIBOSE [Concomitant]
     Route: 065
     Dates: start: 20040604
  7. LANSOPRAZOLE [Concomitant]
     Route: 065
     Dates: start: 20040604
  8. PIOGLITAZONE HYDROCHLORIDE [Concomitant]
     Route: 065
     Dates: start: 20080602

REACTIONS (2)
  - HEPATIC FUNCTION ABNORMAL [None]
  - HYPERTRIGLYCERIDAEMIA [None]
